FAERS Safety Report 10399099 (Version 4)
Quarter: 2016Q4

REPORT INFORMATION
  Report Type: Report from Study
  Country: US (occurrence: US)
  Receive Date: 20140821
  Receipt Date: 20161219
  Transmission Date: 20170206
  Serious: Yes (Death, Hospitalization)
  Sender: FDA-Public Use
  Company Number: US-ACTELION-A-US2014-103574

PATIENT
  Age: 45 Year
  Sex: Female

DRUGS (1)
  1. VELETRI [Suspect]
     Active Substance: EPOPROSTENOL
     Indication: PULMONARY ARTERIAL HYPERTENSION
     Dosage: 3 NG/KG, PER MIN
     Route: 042
     Dates: start: 20140724

REACTIONS (14)
  - Cardiac arrest [Fatal]
  - Pain in jaw [Unknown]
  - Pulmonary arterial hypertension [Fatal]
  - Cerebrovascular accident [Unknown]
  - Right ventricular failure [Fatal]
  - Amnesia [Unknown]
  - Nausea [Unknown]
  - Malaise [Unknown]
  - Vomiting [Unknown]
  - Drug dose omission [Unknown]
  - Retroperitoneal haemorrhage [Fatal]
  - Hemiparesis [Unknown]
  - Slow speech [Unknown]
  - Blindness unilateral [Unknown]

NARRATIVE: CASE EVENT DATE: 20140804
